FAERS Safety Report 23654900 (Version 1)
Quarter: 2024Q1

REPORT INFORMATION
  Report Type: Spontaneous
  Country: US (occurrence: US)
  Receive Date: 20240320
  Receipt Date: 20240320
  Transmission Date: 20240409
  Serious: Yes (Hospitalization)
  Sender: FDA-Public Use
  Company Number: US-ALKERMES INC.-ALK-2024-000612

PATIENT
  Age: 73 Year
  Sex: Female

DRUGS (1)
  1. ARISTADA [Suspect]
     Active Substance: ARIPIPRAZOLE LAUROXIL
     Indication: Schizoaffective disorder
     Dosage: 662 MILLIGRAM, Q3WK
     Route: 030
     Dates: start: 20240108, end: 20240108

REACTIONS (2)
  - Rehabilitation therapy [Not Recovered/Not Resolved]
  - Off label use [Not Recovered/Not Resolved]

NARRATIVE: CASE EVENT DATE: 20240108
